FAERS Safety Report 7552749-X (Version None)
Quarter: 2011Q2

REPORT INFORMATION
  Report Type: 
  Country: None (occurrence: None)
  Receive Date: 20110616
  Receipt Date: 20110610
  Transmission Date: 20111010
  Serious: Yes (Hospitalization)
  Sender: FDA-Public Use
  Company Number: FR-CEPHALON-2011003092

PATIENT
  Sex: Male
  Weight: 85 kg

DRUGS (2)
  1. RITUXIMAB [Suspect]
     Route: 042
     Dates: start: 20101115
  2. BENDAMUSTINE HCL [Suspect]
     Route: 042
     Dates: start: 20101115

REACTIONS (1)
  - LUNG DISORDER [None]
